FAERS Safety Report 24935522 (Version 1)
Quarter: 2025Q1

REPORT INFORMATION
  Report Type: Spontaneous
  Country: US (occurrence: US)
  Receive Date: 20250206
  Receipt Date: 20250206
  Transmission Date: 20250409
  Serious: Yes (Other)
  Sender: GLAXOSMITHKLINE
  Company Number: US-GLAXOSMITHKLINE INC-US2025012858

PATIENT

DRUGS (5)
  1. BENLYSTA [Suspect]
     Active Substance: BELIMUMAB
     Indication: Systemic lupus erythematosus
     Dates: start: 202307
  2. UBRELVY [Concomitant]
     Active Substance: UBROGEPANT
     Indication: Headache
     Dates: start: 2024
  3. TYLENOL [Concomitant]
     Active Substance: ACETAMINOPHEN
     Indication: Headache
  4. MOTRIN [Concomitant]
     Active Substance: IBUPROFEN
     Indication: Headache
     Dates: start: 20250126, end: 20250127
  5. HYDROXYCHLOROQUINE [Concomitant]
     Active Substance: HYDROXYCHLOROQUINE
     Indication: Systemic lupus erythematosus
     Dosage: 200 MG, BID
     Dates: start: 2022, end: 202307

REACTIONS (9)
  - Autoimmune disorder [Recovering/Resolving]
  - Vomiting [Recovered/Resolved]
  - Diarrhoea [Recovered/Resolved]
  - Headache [Recovering/Resolving]
  - Influenza like illness [Unknown]
  - Pain [Recovering/Resolving]
  - Stress [Recovering/Resolving]
  - Nausea [Recovered/Resolved]
  - Product dose omission issue [Unknown]

NARRATIVE: CASE EVENT DATE: 20250114
